FAERS Safety Report 4750155-4 (Version None)
Quarter: 2005Q3

REPORT INFORMATION
  Report Type: 
  Country: None (occurrence: None)
  Receive Date: 20050819
  Receipt Date: 20050812
  Transmission Date: 20060218
  Serious: Yes (Other)
  Sender: FDA-Public Use
  Company Number: 2005-08-0922

PATIENT
  Sex: Female

DRUGS (1)
  1. PEG-INTRON [Suspect]
     Dosage: SUBCUTANEOUS
     Route: 058
     Dates: start: 20050701

REACTIONS (8)
  - ABDOMINAL PAIN UPPER [None]
  - BONE PAIN [None]
  - CHILLS [None]
  - CONSTIPATION [None]
  - GUN SHOT WOUND [None]
  - NAUSEA [None]
  - NEPHRECTOMY [None]
  - PYREXIA [None]
